FAERS Safety Report 9518570 (Version 1)
Quarter: 2013Q3

REPORT INFORMATION
  Report Type: Spontaneous
  Country: US (occurrence: None)
  Receive Date: 20130910
  Receipt Date: 20130910
  Transmission Date: 20140515
  Serious: Yes (Hospitalization)
  Sender: FDA-Public Use
  Company Number: FK201304152

PATIENT
  Age: 36 Year
  Sex: Female

DRUGS (2)
  1. PACLITAXEL [Suspect]
     Indication: OVARIAN EPITHELIAL CANCER
     Dosage: ON DAYS 1, 8 AND 15
  2. CARBOPLATIN [Suspect]
     Indication: OVARIAN EPITHELIAL CANCER
     Dosage: AUC 6 ON DAY 1, INTRAPERITONEAL?

REACTIONS (7)
  - Nausea [None]
  - Vomiting [None]
  - Anaemia [None]
  - Thrombocytopenia [None]
  - Pre-eclampsia [None]
  - Maternal exposure during pregnancy [None]
  - Caesarean section [None]
